FAERS Safety Report 8619443-5 (Version None)
Quarter: 2012Q3

REPORT INFORMATION
  Report Type: 
  Country: None (occurrence: None)
  Receive Date: 20120824
  Receipt Date: 20120816
  Transmission Date: 20120928
  Serious: Yes (Hospitalization)
  Sender: FDA-Public Use
  Company Number: ES-ABBOTT-12P-257-0970787-00

PATIENT
  Age: 47 Year
  Sex: Female

DRUGS (3)
  1. CLARITHROMYCIN [Suspect]
     Indication: HELICOBACTER INFECTION
     Route: 048
  2. OMEPRAZOLE [Concomitant]
     Indication: HELICOBACTER INFECTION
  3. AMOXICILLIN [Concomitant]
     Indication: HELICOBACTER INFECTION

REACTIONS (2)
  - PSYCHOTIC BEHAVIOUR [None]
  - BIPOLAR I DISORDER [None]
